FAERS Safety Report 4442978-6 (Version None)
Quarter: 2004Q3

REPORT INFORMATION
  Report Type: 
  Country: None (occurrence: None)
  Receive Date: 20040903
  Receipt Date: 20040630
  Transmission Date: 20050211
  Serious: Yes (Other)
  Sender: FDA-Public Use
  Company Number: 2004UW13572

PATIENT
  Age: 54 Year
  Sex: Female
  Weight: 89.3586 kg

DRUGS (4)
  1. CRESTOR [Suspect]
     Indication: BLOOD CHOLESTEROL INCREASED
     Dosage: 20 MG PO
     Route: 048
     Dates: start: 20040501
  2. GLUCOTROL [Concomitant]
  3. SYNTHROID [Concomitant]
  4. BLOOD PRESSURE MEDICATION [Concomitant]

REACTIONS (4)
  - ASTHENIA [None]
  - BACK PAIN [None]
  - PAIN IN EXTREMITY [None]
  - POLLAKIURIA [None]
